FAERS Safety Report 25942643 (Version 2)
Quarter: 2025Q4

REPORT INFORMATION
  Report Type: Spontaneous
  Country: EU (occurrence: EU)
  Receive Date: 20251021
  Receipt Date: 20251107
  Transmission Date: 20260117
  Serious: Yes (Life-Threatening, Hospitalization)
  Sender: TEVA
  Company Number: EU-TEVA-VS-3383257

PATIENT
  Age: 20 Year
  Sex: Female

DRUGS (5)
  1. BUDESONIDE [Suspect]
     Active Substance: BUDESONIDE
     Indication: Autoimmune hepatitis
     Route: 065
  2. BUDESONIDE [Suspect]
     Active Substance: BUDESONIDE
     Indication: Autoimmune hepatitis
     Dosage: INITIAL DOSAGE NOT STATED
     Route: 065
     Dates: start: 202405
  3. AZATHIOPRINE [Suspect]
     Active Substance: AZATHIOPRINE
     Indication: Autoimmune hepatitis
     Route: 065
  4. AZATHIOPRINE [Suspect]
     Active Substance: AZATHIOPRINE
     Indication: Autoimmune hepatitis
     Dosage: INITIAL DOSAGE NOT STATED
     Route: 065
     Dates: start: 202403
  5. OCRELIZUMAB [Suspect]
     Active Substance: OCRELIZUMAB
     Indication: Multiple sclerosis
     Route: 065
     Dates: end: 202309

REACTIONS (16)
  - Deafness neurosensory [Not Recovered/Not Resolved]
  - Enterocolitis [Recovered/Resolved]
  - Tachycardia [Recovered/Resolved]
  - Pneumocystis jirovecii infection [Recovered/Resolved]
  - Drug ineffective [Unknown]
  - Gastroenteritis [Recovered/Resolved]
  - Hypotension [Recovered/Resolved]
  - Pneumonia [Recovered/Resolved]
  - Sudden hearing loss [Not Recovered/Not Resolved]
  - Proteinuria [Recovered/Resolved]
  - Herpes simplex [Recovered/Resolved]
  - Respiratory failure [Recovered/Resolved]
  - Sepsis [Recovered/Resolved]
  - Disseminated enteroviral infection [Recovered/Resolved]
  - Acute hepatic failure [Recovered/Resolved]
  - Oedematous pancreatitis [Recovered/Resolved]

NARRATIVE: CASE EVENT DATE: 20230101
